FAERS Safety Report 10019191 (Version 2)
Quarter: 2015Q1

REPORT INFORMATION
  Report Type: Spontaneous
  Country: SE (occurrence: SE)
  Receive Date: 20140318
  Receipt Date: 20150316
  Transmission Date: 20150720
  Serious: Yes (Hospitalization, Other)
  Sender: FDA-Public Use
  Company Number: SE-ELI_LILLY_AND_COMPANY-SE201403003486

PATIENT
  Age: 66 Year
  Sex: Male

DRUGS (10)
  1. HALDOL [Concomitant]
     Active Substance: HALOPERIDOL
     Dosage: UNK, UNKNOWN
     Route: 065
  2. OMEPRAZOLE. [Concomitant]
     Active Substance: OMEPRAZOLE
     Dosage: UNK, UNKNOWN
     Route: 065
  3. ENALAPRIL [Concomitant]
     Active Substance: ENALAPRIL
     Dosage: UNK, UNKNOWN
     Route: 065
  4. DOXAZOSIN [Concomitant]
     Active Substance: DOXAZOSIN\DOXAZOSIN MESYLATE
     Dosage: UNK, UNKNOWN
     Route: 065
  5. FURIX [Concomitant]
     Active Substance: FUROSEMIDE
     Dosage: UNK, UNKNOWN
     Route: 065
  6. ZYPREXA [Suspect]
     Active Substance: OLANZAPINE
     Indication: PRODUCT USED FOR UNKNOWN INDICATION
     Dosage: 1 DF, UNKNOWN
     Route: 065
     Dates: end: 201401
  7. ABILIFY [Suspect]
     Active Substance: ARIPIPRAZOLE
     Indication: PRODUCT USED FOR UNKNOWN INDICATION
     Dosage: 1 DF, UNKNOWN
     Route: 065
     Dates: end: 201401
  8. AKINETON [Concomitant]
     Active Substance: BIPERIDEN HYDROCHLORIDE
     Dosage: UNK, UNKNOWN
     Route: 065
  9. TROMBYL [Concomitant]
     Active Substance: ASPIRIN
     Dosage: UNK, UNKNOWN
     Route: 065
  10. TEGRETOL [Concomitant]
     Active Substance: CARBAMAZEPINE
     Dosage: UNK, UNKNOWN
     Route: 065

REACTIONS (11)
  - Hypothyroidism [Unknown]
  - Urinary retention [Unknown]
  - Pleural effusion [Unknown]
  - Agitation [Unknown]
  - Muscle spasms [Unknown]
  - General physical health deterioration [Unknown]
  - Erysipelas [Unknown]
  - Apathy [Unknown]
  - Bradycardia [Recovered/Resolved]
  - Hypothermia [Recovering/Resolving]
  - Anxiety [Unknown]

NARRATIVE: CASE EVENT DATE: 20131231
